FAERS Safety Report 4819647-3 (Version None)
Quarter: 2005Q4

REPORT INFORMATION
  Report Type: 
  Country: None (occurrence: None)
  Receive Date: 20051102
  Receipt Date: 20051102
  Transmission Date: 20060501
  Serious: Yes (Hospitalization)
  Sender: FDA-Public Use
  Company Number: None

PATIENT
  Age: 67 Year
  Sex: Male
  Weight: 108 kg

DRUGS (1)
  1. SINEMET [Suspect]
     Indication: DEMENTIA ALZHEIMER'S TYPE
     Dosage: 25 /100 MG
     Dates: start: 20050802, end: 20050210

REACTIONS (4)
  - DIZZINESS [None]
  - DYSKINESIA [None]
  - FALL [None]
  - HYPERTENSION [None]
